FAERS Safety Report 5522667-7 (Version None)
Quarter: 2007Q4

REPORT INFORMATION
  Report Type: 
  Country: None (occurrence: None)
  Receive Date: 20071120
  Receipt Date: 20071113
  Transmission Date: 20080405
  Serious: Yes (Hospitalization, Other)
  Sender: FDA-Public Use
  Company Number: US-SHR-US-2007-034022

PATIENT
  Age: 45 Year
  Sex: Male
  Weight: 92.063 kg

DRUGS (23)
  1. BETASERON [Suspect]
     Indication: PROGRESSIVE RELAPSING MULTIPLE SCLEROSIS
     Dosage: UNK, UNK
     Route: 058
     Dates: start: 19991013
  2. BETASERON [Suspect]
     Dosage: 8 MIU, EVERY 2D
     Route: 058
     Dates: start: 20070917
  3. GLUCOTROL [Concomitant]
     Dosage: 10 MG, 2X/DAY
     Route: 048
  4. PHENERGAN HCL [Concomitant]
  5. LECITHIN [Concomitant]
  6. ASCORBIC ACID [Concomitant]
     Dosage: 500 MG, 1X/DAY
     Route: 048
  7. CALCIUM CARBONATE W/VITAMIN D NOS [Concomitant]
     Dosage: 1 TAB(S), 2X/DAY
     Route: 048
  8. NOVOLIN N [Concomitant]
     Dosage: 45 IU, 1X/DAY
     Route: 058
  9. DITROPAN                                /USA/ [Concomitant]
     Dosage: 5 MG, 3X/DAY
     Route: 048
  10. ECOTRIN [Concomitant]
     Dosage: 81 MG, 1X/DAY
     Route: 048
  11. COLACE [Concomitant]
     Dosage: 100 MG, 1X/DAY
     Route: 048
  12. TEARGEN [Concomitant]
     Dosage: 2 DROPS, 3X/DAY TO AFFECTED EYE
  13. BACLOFEN [Concomitant]
     Dosage: PUMP 190 MCG IT Q 24 HOURS
     Route: 037
     Dates: start: 20070101
  14. BACLOFEN [Concomitant]
     Dosage: 20 MG, 3X/DAY
     Route: 048
  15. ZOCOR [Concomitant]
     Dosage: 20 MG, BED T.
     Route: 048
  16. ZANAFLEX [Concomitant]
     Dosage: 4 MG, 2 TABS EVERY 6H
     Route: 048
  17. MAXZIDE [Concomitant]
  18. NEXIUM [Concomitant]
     Dosage: 20 MG, 1X/DAY
     Route: 048
  19. COLACE [Concomitant]
  20. VIAGRA [Concomitant]
  21. LOPERAMIDE HCL [Concomitant]
  22. PERCOCET [Concomitant]
     Indication: PAIN
     Dosage: 1 TAB(S), EVERY 6 HRS, AS REQ'D
  23. DETROL                                  /USA/ [Concomitant]

REACTIONS (6)
  - DIABETIC KETOACIDOSIS [None]
  - DIARRHOEA [None]
  - OSTEOMYELITIS [None]
  - PLEURAL EFFUSION [None]
  - SEPTIC SHOCK [None]
  - UROSEPSIS [None]
